FAERS Safety Report 18971054 (Version 1)
Quarter: 2021Q1

REPORT INFORMATION
  Report Type: Spontaneous
  Country: CN (occurrence: CN)
  Receive Date: 20210304
  Receipt Date: 20210304
  Transmission Date: 20210420
  Serious: Yes (Life-Threatening, Hospitalization)
  Sender: FDA-Public Use
  Company Number: CN-BAXTER-2021BAX004184

PATIENT
  Age: 61 Year
  Sex: Male
  Weight: 64 kg

DRUGS (12)
  1. 0.9% SODIUM CHLORIDE INJECTION [Suspect]
     Active Substance: SODIUM CHLORIDE
     Dosage: RITUXIMAB 600 MG + 0.9% SODIUM CHLORIDE 250ML
     Route: 041
     Dates: start: 20210126, end: 20210126
  2. 0.9% SODIUM CHLORIDE INJECTION [Suspect]
     Active Substance: SODIUM CHLORIDE
     Dosage: RITUXIMAB 100 MG + 0.9% SODIUM CHLORIDE 100ML
     Route: 041
     Dates: start: 20210126, end: 20210126
  3. HANLIKANG [Suspect]
     Active Substance: RITUXIMAB
     Indication: DIFFUSE LARGE B-CELL LYMPHOMA STAGE III
     Dosage: RITUXIMAB 100 MG + 0.9% SODIUM CHLORIDE 100ML
     Route: 041
     Dates: start: 20210126, end: 20210126
  4. 0.9% SODIUM CHLORIDE INJECTION [Suspect]
     Active Substance: SODIUM CHLORIDE
     Dosage: ROUTE: INTRA?PUMP INJECTION; DOXORUBICIN HYDROCHLORIDE 18 MG + 0.9% SODIUM CHLORIDE INJECTION 48ML
     Route: 050
     Dates: start: 20210127, end: 20210130
  5. 0.9% SODIUM CHLORIDE INJECTION [Suspect]
     Active Substance: SODIUM CHLORIDE
     Dosage: ROUTE: INTRA?PUMP INJECTION; ETOPOSIDE 0.087G + 0.9% SODIUM CHLORIDE 48ML
     Route: 050
     Dates: start: 20210127, end: 20210130
  6. VINCRISTINE SULFATE. [Suspect]
     Active Substance: VINCRISTINE SULFATE
     Indication: DIFFUSE LARGE B-CELL LYMPHOMA STAGE III
     Dosage: ROUTE: INTRA?PUMP INJECTION; VINCRISTINE SULFATE 0.7 MG + 0.9% SODIUM CHLORIDE 48ML
     Route: 050
     Dates: start: 20210127, end: 20210130
  7. HANLIKANG [Suspect]
     Active Substance: RITUXIMAB
     Dosage: RITUXIMAB 600 MG + 0.9% SODIUM CHLORIDE 250ML
     Route: 041
     Dates: start: 20210126, end: 20210126
  8. ENDOXAN [Suspect]
     Active Substance: CYCLOPHOSPHAMIDE
     Indication: DIFFUSE LARGE B-CELL LYMPHOMA STAGE III
     Dosage: ENDOXAN 1.3 G + 0.9% SODIUM CHLORIDE 500ML
     Route: 041
     Dates: start: 20210131, end: 20210131
  9. 0.9% SODIUM CHLORIDE INJECTION [Suspect]
     Active Substance: SODIUM CHLORIDE
     Dosage: ROUTE: INTRA?PUMP INJECTION; VINCRISTINE SULFATE 0.7 MG + 0.9% SODIUM CHLORIDE 48ML
     Route: 050
     Dates: start: 20210127, end: 20210130
  10. ETOPOSIDE. [Suspect]
     Active Substance: ETOPOSIDE
     Indication: DIFFUSE LARGE B-CELL LYMPHOMA STAGE III
     Dosage: ROUTE: INTRA?PUMP INJECTION; ETOPOSIDE 0.087G + 0.9% SODIUM CHLORIDE 48ML
     Route: 050
     Dates: start: 20210127, end: 20210130
  11. 0.9% SODIUM CHLORIDE INJECTION [Suspect]
     Active Substance: SODIUM CHLORIDE
     Indication: MEDICATION DILUTION
     Dosage: ENDOXAN 1.3 G + 0.9% SODIUM CHLORIDE 500ML
     Route: 041
     Dates: start: 20210131, end: 20210131
  12. DOXORUBICIN HYDROCHLORIDE. [Suspect]
     Active Substance: DOXORUBICIN HYDROCHLORIDE
     Indication: DIFFUSE LARGE B-CELL LYMPHOMA STAGE III
     Dosage: ROUTE: INTRA?PUMP INJECTION; DOXORUBICIN HYDROCHLORIDE 18 MG + 0.9% SODIUM CHLORIDE INJECTION 48ML
     Route: 050
     Dates: start: 20210127, end: 20210130

REACTIONS (1)
  - Myelosuppression [Recovering/Resolving]

NARRATIVE: CASE EVENT DATE: 20210207
